FAERS Safety Report 18708660 (Version 1)
Quarter: 2021Q1

REPORT INFORMATION
  Report Type: Spontaneous
  Country: US (occurrence: US)
  Receive Date: 20210106
  Receipt Date: 20210106
  Transmission Date: 20210419
  Serious: Yes (Hospitalization, Other)
  Sender: FDA-Public Use
  Company Number: US-ASTRAZENECA-2020SF75915

PATIENT
  Age: 24604 Day
  Sex: Female
  Weight: 61.7 kg

DRUGS (48)
  1. NEXIUM [Suspect]
     Active Substance: ESOMEPRAZOLE MAGNESIUM
     Indication: GASTROOESOPHAGEAL REFLUX DISEASE
     Route: 048
     Dates: start: 200102, end: 200105
  2. KETOPROFEN. [Concomitant]
     Active Substance: KETOPROFEN
  3. METOPROLOL. [Concomitant]
     Active Substance: METOPROLOL
  4. ENOXAPARIN [Concomitant]
     Active Substance: ENOXAPARIN
  5. AMOXICILLIN. [Concomitant]
     Active Substance: AMOXICILLIN
  6. FUROSEMIDE. [Concomitant]
     Active Substance: FUROSEMIDE
     Indication: FLUID RETENTION
  7. HYDROXYZINE [Concomitant]
     Active Substance: HYDROXYZINE HYDROCHLORIDE
  8. ATENOLOL. [Concomitant]
     Active Substance: ATENOLOL
  9. HYOSCYAMINE. [Concomitant]
     Active Substance: HYOSCYAMINE
  10. GABAPENTIN. [Concomitant]
     Active Substance: GABAPENTIN
  11. OMEPRAZOLE. [Suspect]
     Active Substance: OMEPRAZOLE
     Indication: GASTROOESOPHAGEAL REFLUX DISEASE
     Dosage: GENERIC
     Route: 065
     Dates: start: 20130923, end: 20131130
  12. VITAMIN B12 [Concomitant]
     Active Substance: CYANOCOBALAMIN
     Indication: BLOOD CHOLESTEROL INCREASED
     Dates: start: 20111215
  13. TRAMADOL. [Concomitant]
     Active Substance: TRAMADOL
     Indication: PAIN
     Dates: start: 2007, end: 2018
  14. IBUPROFEN. [Concomitant]
     Active Substance: IBUPROFEN
     Indication: INFLAMMATION
     Dates: start: 2006
  15. MOXIFLOXACIN. [Concomitant]
     Active Substance: MOXIFLOXACIN
  16. PREVNAR [Concomitant]
     Active Substance: PNEUMOCOCCAL 7-VALENT CONJUGATE VACCINE (DIPHTHERIA CRM197 PROTEIN)
  17. DOXYCYCLINE. [Concomitant]
     Active Substance: DOXYCYCLINE
  18. PROTONIX [Suspect]
     Active Substance: PANTOPRAZOLE SODIUM
     Indication: GASTROOESOPHAGEAL REFLUX DISEASE
     Dosage: GENERIC, 20?40 MG ONCE DAILY
     Route: 065
     Dates: start: 2000, end: 2010
  19. PROTONIX [Suspect]
     Active Substance: PANTOPRAZOLE SODIUM
     Indication: GASTROOESOPHAGEAL REFLUX DISEASE
     Dosage: GENERIC, 20?40 MG ONCE DAILY
     Route: 065
     Dates: start: 20111126
  20. ATORVASTATIN [Concomitant]
     Active Substance: ATORVASTATIN
     Indication: BLOOD CHOLESTEROL INCREASED
     Dates: start: 20120123
  21. LISINOPRIL. [Concomitant]
     Active Substance: LISINOPRIL
  22. DICLOFENAC [Concomitant]
     Active Substance: DICLOFENAC
  23. GLIPIZIDE. [Concomitant]
     Active Substance: GLIPIZIDE
  24. FLUOXETINE [Concomitant]
     Active Substance: FLUOXETINE HYDROCHLORIDE
     Indication: DEPRESSION
     Dates: start: 201908
  25. HYDROCHLOROTHIAZIDE. [Concomitant]
     Active Substance: HYDROCHLOROTHIAZIDE
  26. ISOSORBIDE. [Concomitant]
     Active Substance: ISOSORBIDE
  27. WARFARIN SODIUM. [Concomitant]
     Active Substance: WARFARIN SODIUM
  28. TIZANIDINE. [Concomitant]
     Active Substance: TIZANIDINE
  29. PROTONIX [Suspect]
     Active Substance: PANTOPRAZOLE SODIUM
     Indication: GASTROOESOPHAGEAL REFLUX DISEASE
     Route: 065
     Dates: start: 20081022, end: 20091110
  30. PROTONIX [Suspect]
     Active Substance: PANTOPRAZOLE SODIUM
     Indication: GASTROOESOPHAGEAL REFLUX DISEASE
     Dosage: GENERIC, 20?40 MG ONCE DAILY
     Route: 065
     Dates: start: 20110126, end: 20110824
  31. FAMOTIDINE. [Concomitant]
     Active Substance: FAMOTIDINE
     Dates: start: 20190706
  32. TAMIFLU [Concomitant]
     Active Substance: OSELTAMIVIR PHOSPHATE
  33. AZITHROMYCIN ANHYDROUS. [Concomitant]
     Active Substance: AZITHROMYCIN ANHYDROUS
  34. CELEBREX [Concomitant]
     Active Substance: CELECOXIB
  35. PROTONIX [Suspect]
     Active Substance: PANTOPRAZOLE SODIUM
     Indication: GASTROOESOPHAGEAL REFLUX DISEASE
     Route: 065
     Dates: start: 20100912, end: 20101204
  36. METFORMIN [Concomitant]
     Active Substance: METFORMIN HYDROCHLORIDE
     Indication: DIABETES MELLITUS
  37. ASPIRIN. [Concomitant]
     Active Substance: ASPIRIN
     Indication: CARDIAC DISORDER
     Dates: start: 2019
  38. BENADRYL [Concomitant]
     Active Substance: DIPHENHYDRAMINE HYDROCHLORIDE
     Indication: HYPERSENSITIVITY
     Dates: start: 2016
  39. CYCLOBENZAPRINE. [Concomitant]
     Active Substance: CYCLOBENZAPRINE
  40. AVELOX [Concomitant]
     Active Substance: MOXIFLOXACIN HYDROCHLORIDE
  41. LIDOCAINE. [Concomitant]
     Active Substance: LIDOCAINE
  42. PROMETHEGAN [Concomitant]
     Active Substance: PROMETHAZINE HYDROCHLORIDE
  43. ESCITALOPRAM [Concomitant]
     Active Substance: ESCITALOPRAM OXALATE
     Indication: DEPRESSION
     Dates: start: 201908
  44. PROZAC [Concomitant]
     Active Substance: FLUOXETINE HYDROCHLORIDE
  45. ONDANSETRON [Concomitant]
     Active Substance: ONDANSETRON
  46. AZITHROMYCIN ANHYDROUS. [Concomitant]
     Active Substance: AZITHROMYCIN ANHYDROUS
  47. LANTUS [Concomitant]
     Active Substance: INSULIN GLARGINE
  48. CARISOPRODOL. [Concomitant]
     Active Substance: CARISOPRODOL

REACTIONS (6)
  - Nephrogenic anaemia [Unknown]
  - Depression [Not Recovered/Not Resolved]
  - Chronic kidney disease [Not Recovered/Not Resolved]
  - Renal failure [Unknown]
  - Gastrooesophageal reflux disease [Not Recovered/Not Resolved]
  - Acute kidney injury [Not Recovered/Not Resolved]

NARRATIVE: CASE EVENT DATE: 20180522
